FAERS Safety Report 4727255-8 (Version None)
Quarter: 2005Q3

REPORT INFORMATION
  Report Type: 
  Country: None (occurrence: None)
  Receive Date: 20050728
  Receipt Date: 20021217
  Transmission Date: 20060218
  Serious: Yes (Death, Other)
  Sender: FDA-Public Use
  Company Number: JP-GLAXOSMITHKLINE-B0288099A

PATIENT
  Age: 49 Year
  Sex: Female
  Weight: 53 kg

DRUGS (4)
  1. ALKERAN [Suspect]
     Indication: STEM CELL TRANSPLANT
     Dosage: 100MG PER DAY
     Route: 042
     Dates: start: 20020827, end: 20020828
  2. ENDOXAN [Suspect]
     Dates: start: 20020625, end: 20020719
  3. POLYPHARMACY [Concomitant]
  4. BLOOD TRANSFUSION [Concomitant]
     Dates: start: 20020902, end: 20021024

REACTIONS (8)
  - CARDIAC FAILURE [None]
  - CARDIOMEGALY [None]
  - NEPHROTIC SYNDROME [None]
  - OXYGEN SATURATION DECREASED [None]
  - PULMONARY CONGESTION [None]
  - RENAL FAILURE [None]
  - URINE OUTPUT DECREASED [None]
  - WEIGHT INCREASED [None]
